FAERS Safety Report 7503398-0 (Version None)
Quarter: 2011Q2

REPORT INFORMATION
  Report Type: 
  Country: None (occurrence: None)
  Receive Date: 20110525
  Receipt Date: 20110518
  Transmission Date: 20111010
  Serious: Yes (Hospitalization)
  Sender: FDA-Public Use
  Company Number: B0710178A

PATIENT
  Sex: Male

DRUGS (2)
  1. VALTREX [Suspect]
     Indication: HERPES SIMPLEX
     Dosage: 500MG PER DAY
     Route: 048
     Dates: start: 20110316, end: 20110317
  2. ACYCLOVIR [Concomitant]
     Dosage: 500MCG PER DAY
     Route: 042
     Dates: start: 20110319, end: 20110323

REACTIONS (15)
  - TOXIC EPIDERMAL NECROLYSIS [None]
  - ORAL DISORDER [None]
  - STOMATITIS [None]
  - NASAL MUCOSAL DISORDER [None]
  - PYREXIA [None]
  - OCULOMUCOCUTANEOUS SYNDROME [None]
  - C-REACTIVE PROTEIN INCREASED [None]
  - DECREASED APPETITE [None]
  - CHEILITIS [None]
  - STEVENS-JOHNSON SYNDROME [None]
  - BALANITIS [None]
  - BACTERIAL INFECTION [None]
  - ERYTHEMA [None]
  - BLISTER [None]
  - WHITE BLOOD CELL COUNT INCREASED [None]
